FAERS Safety Report 9611287 (Version 2)
Quarter: 2013Q4

REPORT INFORMATION
  Report Type: Spontaneous
  Country: US (occurrence: US)
  Receive Date: 20131010
  Receipt Date: 20131010
  Transmission Date: 20140711
  Serious: Yes (Hospitalization)
  Sender: FDA-Public Use
  Company Number: US-BIOGENIDEC-2008BI002189

PATIENT
  Age: 81 Year
  Sex: Female

DRUGS (1)
  1. AVONEX [Suspect]
     Indication: MULTIPLE SCLEROSIS
     Route: 030
     Dates: start: 20050121

REACTIONS (9)
  - Renal failure acute [Recovered/Resolved]
  - Fluid retention [Not Recovered/Not Resolved]
  - Cardiac failure congestive [Not Recovered/Not Resolved]
  - Injection site swelling [Recovered/Resolved]
  - Fall [Recovered/Resolved]
  - Contusion [Unknown]
  - Abasia [Unknown]
  - Urinary tract infection [Unknown]
  - Ankle fracture [Recovered/Resolved]
